FAERS Safety Report 6119656-0 (Version None)
Quarter: 2009Q1

REPORT INFORMATION
  Report Type: 
  Country: None (occurrence: None)
  Receive Date: 20090316
  Receipt Date: 20090309
  Transmission Date: 20090719
  Serious: Yes (Other)
  Sender: FDA-Public Use
  Company Number: US-AVENTIS-200911295US

PATIENT
  Sex: Male

DRUGS (5)
  1. LANTUS [Suspect]
     Route: 058
     Dates: start: 20040801
  2. OPTICLIK (INSULIN INJECTION PEN) [Suspect]
     Dates: start: 20040801
  3. UNKNOWN DRUG [Concomitant]
     Indication: BLOOD CHOLESTEROL ABNORMAL
     Dosage: DOSE: UNK
  4. UNKNOWN DRUG [Concomitant]
     Dosage: DOSE: UNK
  5. ASPIRIN [Concomitant]
     Dosage: DOSE: UNK

REACTIONS (3)
  - DIABETIC RETINOPATHY [None]
  - MYODESOPSIA [None]
  - VISUAL IMPAIRMENT [None]
